FAERS Safety Report 4681388-3 (Version None)
Quarter: 2005Q2

REPORT INFORMATION
  Report Type: 
  Country: None (occurrence: None)
  Receive Date: 20050603
  Receipt Date: 20050527
  Transmission Date: 20051028
  Serious: Yes (Hospitalization)
  Sender: FDA-Public Use
  Company Number: 2005CG00995

PATIENT
  Age: 68 Year
  Sex: Male
  Weight: 90 kg

DRUGS (4)
  1. TENORMIN [Suspect]
     Indication: HYPERTENSION
     Route: 048
     Dates: start: 20050424, end: 20050428
  2. CORVASAL [Concomitant]
  3. ADALAT [Concomitant]
  4. DIAFUSOR [Concomitant]

REACTIONS (3)
  - ACCIDENTAL OVERDOSE [None]
  - BRADYCARDIA [None]
  - MEDICATION ERROR [None]
